FAERS Safety Report 25525614 (Version 1)
Quarter: 2025Q3

REPORT INFORMATION
  Report Type: Spontaneous
  Country: EU (occurrence: EU)
  Receive Date: 20250707
  Receipt Date: 20250707
  Transmission Date: 20251021
  Serious: Yes (Life-Threatening, Hospitalization, Other)
  Sender: PFIZER
  Company Number: None

PATIENT
  Age: 60 Year
  Sex: Male
  Weight: 70 kg

DRUGS (11)
  1. PANTOPRAZOLE [Suspect]
     Active Substance: PANTOPRAZOLE
     Indication: Gastrointestinal disorder
     Dosage: 20 MG, 1X/DAY (20 MILLIGRAM, QD)
     Route: 048
     Dates: start: 20250514, end: 20250515
  2. FLUCLOXACILLIN [Suspect]
     Active Substance: FLUCLOXACILLIN
     Indication: Staphylococcal bacteraemia
     Dosage: 6000 MG, 1X/DAY (6000 MILLIGRAM, QD)
     Route: 065
     Dates: start: 20250503, end: 20250506
  3. FLUCLOXACILLIN [Suspect]
     Active Substance: FLUCLOXACILLIN
     Dosage: 12000 MG, 1X/DAY (12000 MILLIGRAM, QD)
     Route: 065
     Dates: start: 20250507, end: 20250513
  4. FLUCLOXACILLIN [Suspect]
     Active Substance: FLUCLOXACILLIN
     Dosage: 6000 MG, 1X/DAY (6000 MILLIGRAM, QD)
     Route: 065
     Dates: start: 20250514, end: 20250515
  5. LISINOPRIL [Suspect]
     Active Substance: LISINOPRIL
     Indication: Angina pectoris
     Dosage: 10 MG, 1X/DAY (10 MILLIGRAM, QD)
     Route: 048
     Dates: start: 20220104, end: 20250520
  6. NAPROXEN [Suspect]
     Active Substance: NAPROXEN
     Indication: Arthralgia
     Dosage: 500 MG, 2X/DAY (500 MILLIGRAM, Q12H)
     Route: 048
     Dates: start: 20250512, end: 20250520
  7. SIMVASTATIN [Concomitant]
     Active Substance: SIMVASTATIN
     Route: 048
  8. QUETIAPINE [Concomitant]
     Active Substance: QUETIAPINE
     Route: 048
  9. OLANZAPINE [Concomitant]
     Active Substance: OLANZAPINE
     Route: 048
  10. METOPROLOL [Concomitant]
     Active Substance: METOPROLOL
     Route: 048
  11. ASPIRIN [Concomitant]
     Active Substance: ASPIRIN
     Route: 048

REACTIONS (2)
  - Cutaneous vasculitis [Recovered/Resolved]
  - Angioedema [Recovered/Resolved]

NARRATIVE: CASE EVENT DATE: 20250515
